FAERS Safety Report 9305345 (Version 1)
Quarter: 2013Q2

REPORT INFORMATION
  Report Type: Spontaneous
  Country: FR (occurrence: FR)
  Receive Date: 20130523
  Receipt Date: 20130523
  Transmission Date: 20140414
  Serious: Yes (Hospitalization)
  Sender: FDA-Public Use
  Company Number: FR-PFIZER INC-2013157373

PATIENT
  Age: 82 Year
  Sex: Male

DRUGS (11)
  1. CORDARONE [Suspect]
     Indication: ATRIAL FIBRILLATION
     Dosage: 100 MG DAILY
     Route: 048
  2. PRADAXA [Interacting]
     Indication: THROMBOSIS PROPHYLAXIS
     Dosage: UNK
     Route: 048
     Dates: start: 20130206, end: 20130209
  3. PRADAXA [Interacting]
     Dosage: 110 MG, 2X/DAY
     Route: 048
     Dates: start: 20130213, end: 20130219
  4. COZAAR [Concomitant]
     Indication: CARDIOMYOPATHY
     Dosage: UNK
  5. CARDENSIEL [Concomitant]
     Indication: CARDIOMYOPATHY
     Dosage: UNK
  6. DIAMICRON [Concomitant]
     Indication: TYPE 2 DIABETES MELLITUS
     Dosage: UNK
  7. LASILIX [Concomitant]
     Dosage: UNK
  8. DIFFU K [Concomitant]
     Dosage: UNK
  9. EUPRESSYL [Concomitant]
     Dosage: UNK
  10. AUGMENTIN [Concomitant]
     Dosage: UNK
     Dates: start: 20130209, end: 20130214
  11. PREVISCAN [Concomitant]
     Indication: THROMBOSIS PROPHYLAXIS
     Dosage: UNK
     Dates: end: 20130206

REACTIONS (2)
  - Drug interaction [Recovered/Resolved]
  - Epistaxis [Recovered/Resolved]
